FAERS Safety Report 21392242 (Version 1)
Quarter: 2022Q3

REPORT INFORMATION
  Report Type: Spontaneous
  Country: DE (occurrence: None)
  Receive Date: 20220929
  Receipt Date: 20220929
  Transmission Date: 20221026
  Serious: Yes (Hospitalization, Other)
  Sender: FDA-Public Use
  Company Number: 2022A324266

PATIENT
  Age: 66 Year
  Sex: Male
  Weight: 85 kg

DRUGS (10)
  1. TICAGRELOR [Suspect]
     Active Substance: TICAGRELOR
     Dosage: 90 MG, 1-0-1-0
     Route: 048
  2. ASPIRIN [Suspect]
     Active Substance: ASPIRIN
     Dosage: 100 MG, 1-0-0-0
     Route: 048
  3. RAMIPRIL [Concomitant]
     Active Substance: RAMIPRIL
     Dosage: 5 MG, 1-0-1-0
     Route: 048
  4. ROSUVASTATIN [Concomitant]
     Active Substance: ROSUVASTATIN
     Dosage: 10 MG, 0-0-1-0
     Route: 048
  5. GENTAMICIN SULFATE [Concomitant]
     Active Substance: GENTAMICIN SULFATE
     Dosage: 5 MG, 1-1-1-0
     Route: 048
  6. ESOMEPRAZOLE [Concomitant]
     Active Substance: ESOMEPRAZOLE
     Dosage: 40 MG, 1-0-0-0
     Route: 048
  7. METOPROLOL [Concomitant]
     Active Substance: METOPROLOL
     Dosage: 47.5 MG, 1-0-0-0
     Route: 048
  8. METFORMIN [Concomitant]
     Active Substance: METFORMIN HYDROCHLORIDE
     Dosage: 500 MG, 0-0-1-0
     Route: 048
  9. JARDIANCE [Concomitant]
     Active Substance: EMPAGLIFLOZIN
     Dosage: 10 MG, 1-0-0-0
     Route: 048
  10. ENOXAPARIN [Concomitant]
     Active Substance: ENOXAPARIN
     Dosage: 4000 IE, 0-0-1-0
     Route: 058

REACTIONS (5)
  - Cerebral haemorrhage [Unknown]
  - Gaze palsy [Unknown]
  - Language disorder [Unknown]
  - Aphasia [Unknown]
  - Facial paresis [Unknown]
